FAERS Safety Report 16405775 (Version 2)
Quarter: 2019Q3

REPORT INFORMATION
  Report Type: Spontaneous
  Country: PT (occurrence: PT)
  Receive Date: 20190607
  Receipt Date: 20190701
  Transmission Date: 20191004
  Serious: Yes (Other)
  Sender: FDA-Public Use
  Company Number: PT-TAKEDA-2019TEU006729

PATIENT
  Sex: Male

DRUGS (1)
  1. VIPDOMET [Suspect]
     Active Substance: ALOGLIPTIN BENZOATE\METFORMIN HYDROCHLORIDE
     Indication: DIABETES MELLITUS
     Dosage: 12.5/850 MILLIGRAM, BID
     Route: 048

REACTIONS (2)
  - Product quality issue [Unknown]
  - Foreign body in respiratory tract [Recovered/Resolved]
